FAERS Safety Report 5643156-5 (Version None)
Quarter: 2008Q1

REPORT INFORMATION
  Report Type: 
  Country: None (occurrence: None)
  Receive Date: 20080228
  Receipt Date: 20080220
  Transmission Date: 20080703
  Serious: Yes (Hospitalization)
  Sender: FDA-Public Use
  Company Number: FR-AVENTIS-200811649GDDC

PATIENT
  Age: 51 Year
  Sex: Male

DRUGS (6)
  1. RIFATER [Suspect]
     Indication: TUBERCULOSIS
     Route: 048
     Dates: start: 20061008, end: 20061206
  2. PYRAZINAMIDE [Suspect]
     Indication: TUBERCULOSIS
     Route: 048
  3. TRUVADA [Suspect]
     Indication: HIV INFECTION
     Route: 048
     Dates: start: 20061122
  4. SUSTIVA [Concomitant]
     Indication: HIV INFECTION
     Route: 048
     Dates: start: 20061122
  5. DEXAMBUTOL [Concomitant]
     Indication: TUBERCULOSIS
     Route: 048
     Dates: start: 20061008
  6. RIFINAH [Concomitant]
     Indication: TUBERCULOSIS
     Route: 048
     Dates: start: 20061207

REACTIONS (1)
  - IMMUNE RECONSTITUTION SYNDROME [None]
